FAERS Safety Report 16499633 (Version 1)
Quarter: 2019Q3

REPORT INFORMATION
  Report Type: Spontaneous
  Country: JP (occurrence: JP)
  Receive Date: 20190701
  Receipt Date: 20190701
  Transmission Date: 20191004
  Serious: Yes (Disabling)
  Sender: FDA-Public Use
  Company Number: JP-GLAXOSMITHKLINE-JP2019JPN058922

PATIENT
  Age: 48 Year
  Sex: Female

DRUGS (57)
  1. SYMBICORT [Concomitant]
     Active Substance: BUDESONIDE\FORMOTEROL FUMARATE DIHYDRATE
     Dosage: 3 DF, BID
     Dates: start: 201901, end: 201901
  2. ALVESCO INHALER [Concomitant]
     Dosage: UNK
     Dates: start: 201806, end: 201806
  3. SPIRIVA RESPIMAT [Concomitant]
     Active Substance: TIOTROPIUM BROMIDE
     Dosage: 2 DF, QD
  4. SPIRIVA RESPIMAT [Concomitant]
     Active Substance: TIOTROPIUM BROMIDE
     Dosage: 2 DF, QD
     Dates: start: 201802, end: 201802
  5. SPIRIVA RESPIMAT [Concomitant]
     Active Substance: TIOTROPIUM BROMIDE
     Dosage: 2 DF, QD
     Dates: start: 201806, end: 201806
  6. SPIRIVA RESPIMAT [Concomitant]
     Active Substance: TIOTROPIUM BROMIDE
     Dosage: 2 DF, QD
     Dates: start: 201810, end: 201810
  7. SPIRIVA RESPIMAT [Concomitant]
     Active Substance: TIOTROPIUM BROMIDE
     Dosage: 2 DF, QD
     Dates: start: 201903, end: 201903
  8. SYMBICORT [Concomitant]
     Active Substance: BUDESONIDE\FORMOTEROL FUMARATE DIHYDRATE
     Dosage: 3 DF, BID
     Dates: start: 201810, end: 201810
  9. SYMBICORT [Concomitant]
     Active Substance: BUDESONIDE\FORMOTEROL FUMARATE DIHYDRATE
     Dosage: 3 DF, BID
     Dates: start: 201811, end: 201811
  10. ALVESCO INHALER [Concomitant]
     Indication: ASTHMA
     Dosage: UNK
     Dates: start: 201802, end: 201802
  11. ALVESCO INHALER [Concomitant]
     Dosage: UNK
     Dates: start: 201804, end: 201804
  12. SPIRIVA RESPIMAT [Concomitant]
     Active Substance: TIOTROPIUM BROMIDE
     Dosage: 2 DF, QD
     Dates: start: 201805, end: 201805
  13. SPIRIVA RESPIMAT [Concomitant]
     Active Substance: TIOTROPIUM BROMIDE
     Dosage: 2 DF, QD
     Dates: start: 201905, end: 201905
  14. SYMBICORT [Concomitant]
     Active Substance: BUDESONIDE\FORMOTEROL FUMARATE DIHYDRATE
     Indication: ASTHMA
     Dosage: 8 DF, 1D
  15. SYMBICORT [Concomitant]
     Active Substance: BUDESONIDE\FORMOTEROL FUMARATE DIHYDRATE
     Dosage: UNK
     Dates: start: 201803, end: 201803
  16. SYMBICORT [Concomitant]
     Active Substance: BUDESONIDE\FORMOTEROL FUMARATE DIHYDRATE
     Dosage: 3 DF, BID
     Dates: start: 201807, end: 201807
  17. SYMBICORT [Concomitant]
     Active Substance: BUDESONIDE\FORMOTEROL FUMARATE DIHYDRATE
     Dosage: 3 DF, BID
     Dates: start: 201812, end: 201812
  18. ALVESCO INHALER [Concomitant]
     Dosage: UNK
     Dates: start: 201803, end: 201803
  19. ALVESCO INHALER [Concomitant]
     Dosage: UNK
     Dates: start: 201804, end: 201804
  20. ALVESCO INHALER [Concomitant]
     Dosage: 2 DF, QD
     Dates: start: 201807, end: 201807
  21. ALVESCO INHALER [Concomitant]
     Dosage: UNK UNK, QD
     Dates: start: 201809, end: 201809
  22. ALVESCO INHALER [Concomitant]
     Dosage: 2 DF, QD
     Dates: start: 201810, end: 201810
  23. ALVESCO INHALER [Concomitant]
     Dosage: 2 DF, QD
     Dates: start: 201901, end: 201901
  24. ALVESCO INHALER [Concomitant]
     Dosage: 2 DF, QD
     Dates: start: 201903, end: 201903
  25. SPIRIVA RESPIMAT [Concomitant]
     Active Substance: TIOTROPIUM BROMIDE
     Dosage: 2 DF, QD
     Dates: start: 201803, end: 201803
  26. SPIRIVA RESPIMAT [Concomitant]
     Active Substance: TIOTROPIUM BROMIDE
     Dosage: 2 DF, QD
     Dates: start: 201804, end: 201804
  27. SPIRIVA RESPIMAT [Concomitant]
     Active Substance: TIOTROPIUM BROMIDE
     Dosage: 2 DF, QD
     Dates: start: 201812, end: 201812
  28. MONTELUKAST SODIUM TABLET [Concomitant]
     Active Substance: MONTELUKAST SODIUM
     Dosage: 10 MG, QD
     Dates: start: 201804, end: 201906
  29. MOSAPRIDE CITRATE HYDRATE [Concomitant]
     Active Substance: MOSAPRIDE CITRATE DIHYDRATE
     Dosage: 5 MG, TID
     Dates: start: 201802
  30. SYMBICORT [Concomitant]
     Active Substance: BUDESONIDE\FORMOTEROL FUMARATE DIHYDRATE
     Dosage: UNK
     Dates: start: 201802, end: 201802
  31. SYMBICORT [Concomitant]
     Active Substance: BUDESONIDE\FORMOTEROL FUMARATE DIHYDRATE
     Dosage: UNK
     Dates: start: 201804, end: 201804
  32. SYMBICORT [Concomitant]
     Active Substance: BUDESONIDE\FORMOTEROL FUMARATE DIHYDRATE
     Dosage: UNK
     Dates: start: 201804, end: 201804
  33. ALVESCO INHALER [Concomitant]
     Dosage: UNK
     Dates: start: 201805, end: 201805
  34. ALVESCO INHALER [Concomitant]
     Dosage: 2 DF, QD
     Dates: start: 201812, end: 201812
  35. SPIRIVA RESPIMAT [Concomitant]
     Active Substance: TIOTROPIUM BROMIDE
     Dosage: 2 DF, QD
     Dates: start: 201802, end: 201802
  36. SPIRIVA RESPIMAT [Concomitant]
     Active Substance: TIOTROPIUM BROMIDE
     Dosage: 2 DF, QD
     Dates: start: 201811, end: 201811
  37. ALVESCO INHALER [Concomitant]
     Dosage: 2 DF, QD
     Dates: start: 201905, end: 201905
  38. SPIRIVA RESPIMAT [Concomitant]
     Active Substance: TIOTROPIUM BROMIDE
     Dosage: 2 DF, QD
     Dates: start: 201901, end: 201901
  39. SYMBICORT [Concomitant]
     Active Substance: BUDESONIDE\FORMOTEROL FUMARATE DIHYDRATE
     Dosage: UNK
     Dates: start: 201802, end: 201802
  40. SYMBICORT [Concomitant]
     Active Substance: BUDESONIDE\FORMOTEROL FUMARATE DIHYDRATE
     Dosage: 3 DF, BID
     Dates: start: 201902, end: 201902
  41. SPIRIVA RESPIMAT [Concomitant]
     Active Substance: TIOTROPIUM BROMIDE
     Dosage: 2 DF, QD
     Dates: start: 201804, end: 201804
  42. SPIRIVA RESPIMAT [Concomitant]
     Active Substance: TIOTROPIUM BROMIDE
     Dosage: 2 DF, QD
     Dates: start: 201808, end: 201808
  43. SYMBICORT [Concomitant]
     Active Substance: BUDESONIDE\FORMOTEROL FUMARATE DIHYDRATE
     Dosage: 3 DF, BID
     Dates: start: 201808, end: 201808
  44. SYMBICORT [Concomitant]
     Active Substance: BUDESONIDE\FORMOTEROL FUMARATE DIHYDRATE
     Dosage: 3 DF, BID
     Dates: start: 201903, end: 201903
  45. SYMBICORT [Concomitant]
     Active Substance: BUDESONIDE\FORMOTEROL FUMARATE DIHYDRATE
     Dosage: 3 DF, BID
     Dates: start: 201905, end: 201905
  46. ALVESCO INHALER [Concomitant]
     Dosage: 2 DF, QD
     Dates: start: 201808, end: 201808
  47. ALVESCO INHALER [Concomitant]
     Dosage: 2 DF, QD
     Dates: start: 201902, end: 201902
  48. SPIRIVA RESPIMAT [Concomitant]
     Active Substance: TIOTROPIUM BROMIDE
     Dosage: 2 DF, QD
     Dates: start: 201807, end: 201807
  49. MEPOLIZUMAB [Suspect]
     Active Substance: MEPOLIZUMAB
     Indication: ASTHMA
     Dosage: 100 MG, QD
     Route: 058
     Dates: start: 20180808, end: 20180808
  50. BIFUROXIN [Concomitant]
     Dosage: 2 DF, TID
     Dates: start: 201802
  51. SYMBICORT [Concomitant]
     Active Substance: BUDESONIDE\FORMOTEROL FUMARATE DIHYDRATE
     Dosage: UNK
     Dates: start: 201805, end: 201805
  52. SYMBICORT [Concomitant]
     Active Substance: BUDESONIDE\FORMOTEROL FUMARATE DIHYDRATE
     Dosage: UNK
     Dates: start: 201806, end: 201806
  53. SYMBICORT [Concomitant]
     Active Substance: BUDESONIDE\FORMOTEROL FUMARATE DIHYDRATE
     Dosage: 3 DF, BID
     Dates: start: 201809, end: 201809
  54. ALVESCO INHALER [Concomitant]
     Dosage: 2 DF, QD
     Dates: start: 201811, end: 201811
  55. SPIRIVA RESPIMAT [Concomitant]
     Active Substance: TIOTROPIUM BROMIDE
     Dosage: 2 DF, QD
     Dates: start: 201809, end: 201809
  56. SPIRIVA RESPIMAT [Concomitant]
     Active Substance: TIOTROPIUM BROMIDE
     Dosage: 2 DF, QD
     Dates: start: 201902, end: 201902
  57. SPIRIVA RESPIMAT [Concomitant]
     Active Substance: TIOTROPIUM BROMIDE
     Dosage: 2 DF, QD
     Dates: start: 201904, end: 201904

REACTIONS (3)
  - Eye pain [Unknown]
  - Abnormal sensation in eye [Unknown]
  - Visual acuity reduced [Not Recovered/Not Resolved]

NARRATIVE: CASE EVENT DATE: 20180808
